FAERS Safety Report 14624452 (Version 1)
Quarter: 2018Q1

REPORT INFORMATION
  Report Type: Spontaneous
  Country: US (occurrence: US)
  Receive Date: 20180310
  Receipt Date: 20180310
  Transmission Date: 20180509
  Serious: Yes (Other)
  Sender: FDA-Public Use
  Company Number: None

PATIENT
  Age: 49 Year
  Sex: Female
  Weight: 73.35 kg

DRUGS (4)
  1. ZOLOFT [Concomitant]
     Active Substance: SERTRALINE HYDROCHLORIDE
  2. MINIVELLE [Suspect]
     Active Substance: ESTRADIOL
     Indication: HORMONE REPLACEMENT THERAPY
     Dosage: ?          QUANTITY:1 PATCH(ES);OTHER FREQUENCY:2 TIMES PER WEEK;?
     Route: 062
     Dates: start: 20171205, end: 20180308
  3. BISOPROLOL FUMARATE. [Concomitant]
     Active Substance: BISOPROLOL FUMARATE
  4. NYSTATIN. [Concomitant]
     Active Substance: NYSTATIN

REACTIONS (5)
  - Chest pain [None]
  - Neck pain [None]
  - Product substitution issue [None]
  - Headache [None]
  - Nausea [None]

NARRATIVE: CASE EVENT DATE: 20180305
